FAERS Safety Report 13225550 (Version 1)
Quarter: 2017Q1

REPORT INFORMATION
  Report Type: Spontaneous
  Country: US (occurrence: US)
  Receive Date: 20170211
  Receipt Date: 20170211
  Transmission Date: 20170428
  Serious: Yes (Hospitalization)
  Sender: FDA-Public Use
  Company Number: None

PATIENT
  Age: 56 Year
  Sex: Female
  Weight: 54 kg

DRUGS (1)
  1. CISPLATIN. [Suspect]
     Active Substance: CISPLATIN
     Dates: end: 20161128

REACTIONS (7)
  - Enterococcal infection [None]
  - Haemoglobin decreased [None]
  - Pyelonephritis [None]
  - Candida infection [None]
  - Vomiting [None]
  - Pyrexia [None]
  - Urine abnormality [None]

NARRATIVE: CASE EVENT DATE: 20161123
